FAERS Safety Report 6382219-6 (Version None)
Quarter: 2009Q3

REPORT INFORMATION
  Report Type: 
  Country: None (occurrence: None)
  Receive Date: 20090928
  Receipt Date: 20090928
  Transmission Date: 20100115
  Serious: Yes (Hospitalization)
  Sender: FDA-Public Use
  Company Number: None

PATIENT
  Age: 74 Year
  Sex: Female
  Weight: 82.5547 kg

DRUGS (2)
  1. PLAVIX [Suspect]
     Indication: ANTIPLATELET THERAPY
     Dosage: 75MG  1 PER DAY
     Dates: start: 20090405, end: 20090827
  2. PLAVIX [Suspect]
     Indication: STENT PLACEMENT
     Dosage: 75MG  1 PER DAY
     Dates: start: 20090405, end: 20090827

REACTIONS (3)
  - DYSSTASIA [None]
  - HAEMATEMESIS [None]
  - NAUSEA [None]
